FAERS Safety Report 18856030 (Version 11)
Quarter: 2022Q1

REPORT INFORMATION
  Report Type: Spontaneous
  Country: GB (occurrence: GB)
  Receive Date: 20210206
  Receipt Date: 20220317
  Transmission Date: 20220423
  Serious: Yes (Hospitalization, Other)
  Sender: FDA-Public Use
  Company Number: None

PATIENT
  Age: 54 Year
  Sex: Female

DRUGS (52)
  1. LETROZOLE [Suspect]
     Active Substance: LETROZOLE
     Indication: Breast cancer metastatic
     Route: 048
     Dates: start: 20150707, end: 20170427
  2. EXEMESTANE [Suspect]
     Active Substance: EXEMESTANE
     Indication: Breast cancer metastatic
     Route: 048
     Dates: start: 20170428, end: 20180110
  3. ADO-TRASTUZUMAB EMTANSINE [Suspect]
     Active Substance: ADO-TRASTUZUMAB EMTANSINE
     Indication: HER2 positive breast cancer
     Dosage: 4 WEEK
     Route: 042
     Dates: start: 20180118, end: 20201117
  4. XGEVA [Suspect]
     Active Substance: DENOSUMAB
     Indication: Metastases to bone
     Dosage: 120 MILLIGRAM
     Route: 058
     Dates: start: 20170604, end: 20170613
  5. DENOSUMAB [Suspect]
     Active Substance: DENOSUMAB
     Indication: Product used for unknown indication
     Dosage: 120 MILLIGRAM, 6 WEEKS
     Route: 058
     Dates: start: 20180118
  6. TRASTUZUMAB [Suspect]
     Active Substance: TRASTUZUMAB
     Indication: Product used for unknown indication
     Dosage: 600 MILLIGRAM, QMO
     Route: 058
     Dates: start: 20150716, end: 20171222
  7. LOPERAMIDE [Concomitant]
     Active Substance: LOPERAMIDE
     Indication: Diarrhoea
     Dosage: UNK
     Route: 065
     Dates: start: 201804, end: 2019
  8. MAGNESIUM ASPARTATE [Concomitant]
     Active Substance: MAGNESIUM ASPARTATE
     Indication: Hypomagnesaemia
     Dosage: 6.5 MILLIGRAM, TWO TIMES A DAY ONGOING
     Route: 048
     Dates: start: 20191111
  9. METRONIDAZOLE [Concomitant]
     Active Substance: METRONIDAZOLE
     Indication: Pyrexia
     Dosage: UNK
     Route: 048
     Dates: start: 20170701, end: 20170708
  10. MORPHINE SULFATE [Concomitant]
     Active Substance: MORPHINE SULFATE
     Dosage: 40 MILLIGRAM, DAILY
     Route: 048
     Dates: start: 20171224
  11. NAPROXEN [Concomitant]
     Active Substance: NAPROXEN
     Indication: Product used for unknown indication
     Dosage: 500 MILLIGRAM, ONCE A DAY (250 MG TWO TIMES DAY)
     Route: 048
  12. ACETAMINOPHEN [Concomitant]
     Active Substance: ACETAMINOPHEN
     Indication: Product used for unknown indication
     Dosage: 500 MILLIGRAM
     Route: 048
     Dates: start: 201504
  13. CALCIUM CARBONATE\SODIUM ALGINATE\SODIUM BICARBONATE [Concomitant]
     Active Substance: CALCIUM CARBONATE\SODIUM ALGINATE\SODIUM BICARBONATE
     Indication: Product used for unknown indication
     Dosage: 15 MILLILITER
     Route: 048
  14. PIPERACILLIN AND TAZOBACTAM [Concomitant]
     Active Substance: PIPERACILLIN SODIUM\TAZOBACTAM SODIUM
     Indication: Product used for unknown indication
     Dosage: UNK
     Route: 065
  15. PROMETHAZINE HYDROCHLORIDE [Concomitant]
     Active Substance: PROMETHAZINE HYDROCHLORIDE
     Indication: Product used for unknown indication
     Dosage: 25 MILLIGRAM
     Route: 048
  16. TINZAPARIN [Concomitant]
     Active Substance: TINZAPARIN
     Dosage: 22000 INTERNATIONAL UNIT
     Route: 058
     Dates: start: 20200622
  17. VITAMIN D3 [Concomitant]
     Active Substance: CHOLECALCIFEROL
     Indication: Bone disorder
     Dosage: 400 INTERNATIONAL UNIT, ONCE A DAY
     Route: 048
     Dates: start: 20150827
  18. MORPHINE SULFATE [Concomitant]
     Active Substance: MORPHINE SULFATE
     Indication: Pain
     Dosage: 30 MILLIGRAM, TWO TIMES A DAY (60 MG ONCE A DAY)
     Route: 048
     Dates: start: 201611
  19. MORPHINE SULFATE [Concomitant]
     Active Substance: MORPHINE SULFATE
     Indication: Metastatic neoplasm
  20. AMOXICILLIN [Concomitant]
     Active Substance: AMOXICILLIN
     Indication: Lower respiratory tract infection
     Dosage: 3000 MILLIGRAM, ONCE A DAY (1000MG (0.33 DAY)
     Route: 048
     Dates: start: 20170701, end: 20170706
  21. CITALOPRAM [Concomitant]
     Active Substance: CITALOPRAM HYDROBROMIDE
     Indication: Product used for unknown indication
     Dosage: 40 MILLIGRAM, ONCE A DAY
     Route: 048
     Dates: start: 2005
  22. CLARITHROMYCIN [Concomitant]
     Active Substance: CLARITHROMYCIN
     Indication: Pyrexia
     Dosage: 500 MILLIGRAM, TWO TIMES A DAY
     Route: 048
     Dates: start: 20180701, end: 20180711
  23. CLINDAMYCIN [Concomitant]
     Active Substance: CLINDAMYCIN
     Indication: Staphylococcal infection
     Dosage: 4.8 GRAM, DAILY
     Route: 042
     Dates: start: 20190611, end: 20190621
  24. COTRIMOXAZOLE [Concomitant]
     Active Substance: SULFAMETHOXAZOLE\TRIMETHOPRIM
     Dosage: 960 MILLIGRAM, BID
     Route: 042
     Dates: start: 20190611, end: 20190611
  25. CYCLIZINE [Concomitant]
     Active Substance: CYCLIZINE
     Indication: Product used for unknown indication
     Dosage: 150 MILLIGRAM, DAILY
     Route: 048
     Dates: start: 201507
  26. DERMOL [Concomitant]
     Active Substance: BENZALKONIUM CHLORIDE\CHLORHEXIDINE HYDROCHLORIDE\ISOPROPYL MYRISTATE\PARAFFIN
     Indication: Product used for unknown indication
     Dosage: UNK, ONCE A DAY
     Route: 061
  27. DIAZEPAM [Concomitant]
     Active Substance: DIAZEPAM
     Indication: Musculoskeletal stiffness
  28. DOXYCYCLINE [Concomitant]
     Active Substance: DOXYCYCLINE
     Indication: Lower respiratory tract infection
     Dosage: 100 MILLIGRAM, ONCE A DAY
     Route: 048
     Dates: start: 20170112, end: 20170118
  29. FERROUS SULFATE [Concomitant]
     Active Substance: FERROUS SULFATE
     Indication: Anaemia
     Dosage: 200 MILLIGRAM, ONCE A DAY ONGOING
     Route: 048
     Dates: start: 20200804
  30. FLUCLOXACILLIN [Concomitant]
     Active Substance: FLUCLOXACILLIN
     Indication: Paronychia
     Dosage: 2000 MILLIGRAM ONCE A DAY,  (500 MILLIGRAM, 4 TIMES A DAY)
     Route: 048
     Dates: start: 20180910, end: 20180912
  31. FUROSEMIDE [Concomitant]
     Active Substance: FUROSEMIDE
     Dosage: 40 MILLIGRAM, ONCE A DAY
     Route: 042
     Dates: start: 20200622, end: 20200623
  32. GABAPENTIN [Concomitant]
     Active Substance: GABAPENTIN
     Indication: Product used for unknown indication
     Dosage: 3.6 GRAM, DAILY
     Route: 048
  33. BUTYLSCOPOLAMINE BROMIDE [Concomitant]
     Active Substance: BUTYLSCOPOLAMINE BROMIDE
     Indication: Nausea
     Dosage: 30 MILLIGRAM, DAILY
     Route: 048
     Dates: start: 20181222
  34. ENOXAPARIN SODIUM [Concomitant]
     Active Substance: ENOXAPARIN SODIUM
     Indication: Thrombosis prophylaxis
     Dosage: 40 MILLIGRAM, ONCE A DAY
     Route: 058
     Dates: start: 20190610, end: 20190623
  35. LANSOPRAZOLE [Concomitant]
     Active Substance: LANSOPRAZOLE
     Indication: Product used for unknown indication
     Dosage: 30 MILLIGRAM, ONCE A DAY
     Route: 048
  36. LEVOTHYROXINE [Concomitant]
     Active Substance: LEVOTHYROXINE
     Indication: Hypothyroidism
     Dosage: 50 MICROGRAM, ONCE A DAY
     Route: 048
     Dates: start: 20200311
  37. LISINOPRIL [Concomitant]
     Active Substance: LISINOPRIL
     Indication: Ejection fraction decreased
     Dosage: 7.5 MILLIGRAM, DAILY
     Route: 048
     Dates: start: 20161110
  38. ACYCLOVIR [Concomitant]
     Active Substance: ACYCLOVIR
     Dosage: 5 PERCENT
     Route: 061
     Dates: start: 20161213, end: 20161218
  39. PENICILLIN G [Concomitant]
     Active Substance: PENICILLIN G
     Indication: Pyrexia
     Dosage: 1.2 GRAM, 0.25 DAY
     Route: 042
     Dates: start: 20180912
  40. CIPROFLOXACIN [Concomitant]
     Active Substance: CIPROFLOXACIN
     Indication: Product used for unknown indication
     Dosage: 750 MILLIGRAM, 0.5 DAY
     Route: 048
     Dates: start: 20190205
  41. AMOXICILLIN\CLAVULANATE POTASSIUM [Concomitant]
     Active Substance: AMOXICILLIN\CLAVULANATE POTASSIUM
     Route: 048
     Dates: start: 20190322
  42. CODEINE [Concomitant]
     Active Substance: CODEINE
     Indication: Product used for unknown indication
     Dosage: 30 MILLIGRAM, AS NECESSARY
     Route: 048
     Dates: start: 201504
  43. LINEZOLID [Concomitant]
     Active Substance: LINEZOLID
     Indication: Pyrexia
     Dosage: 600 MILLIGRAM, 0.5 DAY
     Route: 048
     Dates: start: 20181223, end: 20181227
  44. MEROPENEM [Concomitant]
     Active Substance: MEROPENEM
     Dosage: 1 GRAM, 0.33 DAY
     Route: 042
     Dates: start: 20190205
  45. TEICOPLANIN [Concomitant]
     Active Substance: TEICOPLANIN
     Indication: Product used for unknown indication
  46. ZANAMIVIR [Concomitant]
     Active Substance: ZANAMIVIR
     Dates: start: 20191218, end: 20191219
  47. DEXAMETHASONE [Concomitant]
     Active Substance: DEXAMETHASONE
     Indication: Product used for unknown indication
     Dosage: 4 MILLIGRAM, 0.5 DAY
     Dates: start: 20151104, end: 20151110
  48. AMITRIPTYLINE [Concomitant]
     Active Substance: AMITRIPTYLINE
     Indication: Herpes zoster
     Dosage: 10 MG
     Route: 048
     Dates: start: 20160727, end: 20160809
  49. WHOLE BLOOD [Concomitant]
     Active Substance: WHOLE BLOOD
     Dosage: 2 UNITS
     Dates: start: 20191112, end: 20191112
  50. ZOMETA [Concomitant]
     Active Substance: ZOLEDRONIC ACID
     Indication: Bone disorder
     Dosage: 4 MILLIGRAM, Q4MO
     Route: 042
     Dates: start: 20150827, end: 20160314
  51. PIPERACILLIN SODIUM\TAZOBACTAM SODIUM [Concomitant]
     Active Substance: PIPERACILLIN SODIUM\TAZOBACTAM SODIUM
     Dosage: 4.5 MILLIGRAM
     Route: 041
     Dates: start: 20191221, end: 20191227
  52. FUROSEMIDE [Concomitant]
     Active Substance: FUROSEMIDE
     Dosage: 40 MG, QD
     Route: 042
     Dates: start: 20200622, end: 20200622

REACTIONS (12)
  - Escherichia infection [Recovered/Resolved]
  - Klebsiella infection [Recovered/Resolved]
  - Infection [Not Recovered/Not Resolved]
  - Pneumonia [Recovered/Resolved]
  - Constipation [Recovered/Resolved]
  - Haemoptysis [Recovered/Resolved]
  - Pyrexia [Not Recovered/Not Resolved]
  - Cellulitis [Recovered/Resolved]
  - Candida infection [Recovered/Resolved]
  - Lower respiratory tract infection [Recovered/Resolved]
  - Sepsis [Recovered/Resolved]
  - Diarrhoea [Recovered/Resolved]

NARRATIVE: CASE EVENT DATE: 20180427
